FAERS Safety Report 19073778 (Version 5)
Quarter: 2021Q3

REPORT INFORMATION
  Report Type: Report from Study
  Country: AR (occurrence: AR)
  Receive Date: 20210330
  Receipt Date: 20210803
  Transmission Date: 20211014
  Serious: Yes (Other)
  Sender: FDA-Public Use
  Company Number: NVSC2021AR071086

PATIENT
  Age: 59 Year
  Sex: Male
  Weight: 78 kg

DRUGS (7)
  1. TRAMETINIB [Suspect]
     Active Substance: TRAMETINIB
     Dosage: 1.5 MG
     Route: 048
     Dates: start: 20210416, end: 20210504
  2. BEVACIZUMAB. [Suspect]
     Active Substance: BEVACIZUMAB
     Indication: DISEASE PROGRESSION
     Dosage: 700 MG
     Route: 065
     Dates: start: 20200915, end: 20210119
  3. LEVETIRACETAM. [Concomitant]
     Active Substance: LEVETIRACETAM
     Indication: PRODUCT USED FOR UNKNOWN INDICATION
     Dosage: UNK
     Route: 065
  4. TRAMETINIB [Suspect]
     Active Substance: TRAMETINIB
     Dosage: UNK
     Route: 048
     Dates: start: 20210401
  5. TRAMETINIB [Suspect]
     Active Substance: TRAMETINIB
     Indication: GLIOBLASTOMA
     Dosage: 2 MG (0.5 MG X 30)
     Route: 048
     Dates: start: 20210119, end: 20210307
  6. TRAMETINIB [Suspect]
     Active Substance: TRAMETINIB
     Dosage: 1 MG
     Route: 048
     Dates: start: 20210504
  7. TRAMETINIB [Suspect]
     Active Substance: TRAMETINIB
     Dosage: 1 MG
     Route: 048
     Dates: start: 20210402, end: 20210416

REACTIONS (12)
  - Glioblastoma [Unknown]
  - Malignant neoplasm progression [Unknown]
  - Neutrophil percentage increased [Recovering/Resolving]
  - Aphasia [Unknown]
  - Dermatitis [Recovering/Resolving]
  - Red cell distribution width increased [Recovering/Resolving]
  - Hepatitis [Recovering/Resolving]
  - Rash papular [Recovering/Resolving]
  - Asthenia [Unknown]
  - Blood lactate dehydrogenase increased [Recovering/Resolving]
  - Mean platelet volume increased [Recovering/Resolving]
  - Lymphocyte count decreased [Recovering/Resolving]

NARRATIVE: CASE EVENT DATE: 20210304
